FAERS Safety Report 8617776-X (Version None)
Quarter: 2012Q3

REPORT INFORMATION
  Report Type: 
  Country: None (occurrence: None)
  Receive Date: 20120824
  Receipt Date: 20120302
  Transmission Date: 20120928
  Serious: No
  Sender: FDA-Public Use
  Company Number: US-ASTRAZENECA-2012SE14833

PATIENT
  Sex: Female
  Weight: 72.6 kg

DRUGS (10)
  1. SYMBICORT [Suspect]
     Indication: CHRONIC OBSTRUCTIVE PULMONARY DISEASE
     Dosage: 160/4.5 BID
     Route: 055
  2. ASPIRIN [Concomitant]
  3. VITAMIN B COMPLEX CAP [Concomitant]
  4. SPIRVA [Concomitant]
  5. VITAMIN AND MINERAL PRENATAL SUPPLEMENT W/ FOLIC ACID CAP [Concomitant]
  6. GARLIC [Concomitant]
  7. VITAMIN D [Concomitant]
  8. VITAMIN B-12 [Concomitant]
  9. BUMEX [Concomitant]
  10. PURINOL [Concomitant]

REACTIONS (7)
  - OFF LABEL USE [None]
  - CHILLS [None]
  - BACK PAIN [None]
  - INFLAMMATION [None]
  - BONE PAIN [None]
  - CANDIDIASIS [None]
  - HEART RATE INCREASED [None]
